FAERS Safety Report 13137283 (Version 1)
Quarter: 2017Q1

REPORT INFORMATION
  Report Type: Spontaneous
  Country: US (occurrence: US)
  Receive Date: 20170120
  Receipt Date: 20170120
  Transmission Date: 20170428
  Serious: No
  Sender: FDA-Public Use
  Company Number: None

PATIENT
  Age: 64 Year
  Sex: Female

DRUGS (2)
  1. HARVONI [Suspect]
     Active Substance: LEDIPASVIR\SOFOSBUVIR
     Indication: ACUTE HEPATITIS C
  2. HARVONI [Suspect]
     Active Substance: LEDIPASVIR\SOFOSBUVIR
     Indication: CHRONIC HEPATITIS C

REACTIONS (2)
  - Drug dose omission [None]
  - Headache [None]

NARRATIVE: CASE EVENT DATE: 20170120
